FAERS Safety Report 6677471-3 (Version None)
Quarter: 2010Q2

REPORT INFORMATION
  Report Type: 
  Country: None (occurrence: None)
  Receive Date: 20100412
  Receipt Date: 20100407
  Transmission Date: 20101027
  Serious: Yes (Other)
  Sender: FDA-Public Use
  Company Number: A0854330A

PATIENT
  Sex: Female
  Weight: 60 kg

DRUGS (2)
  1. AVODART [Suspect]
     Indication: DRUG USE FOR UNKNOWN INDICATION
     Dosage: .5MG PER DAY
     Route: 048
     Dates: start: 20100209
  2. METFORMIN HCL [Concomitant]
     Dates: start: 20091001

REACTIONS (2)
  - COAGULOPATHY [None]
  - DRUG ADMINISTRATION ERROR [None]
